FAERS Safety Report 20621080 (Version 13)
Quarter: 2022Q3

REPORT INFORMATION
  Report Type: Report from Study
  Country: US (occurrence: US)
  Receive Date: 20220322
  Receipt Date: 20220928
  Transmission Date: 20221027
  Serious: Yes (Hospitalization)
  Sender: FDA-Public Use
  Company Number: US-GILEAD-2022-0572989

PATIENT
  Sex: Male

DRUGS (6)
  1. AMBRISENTAN [Suspect]
     Active Substance: AMBRISENTAN
     Indication: Pulmonary arterial hypertension
     Dosage: 10 MG, QD
     Route: 048
     Dates: start: 20200206
  2. AMBRISENTAN [Suspect]
     Active Substance: AMBRISENTAN
     Indication: Pulmonary hypertension
  3. VELETRI [Concomitant]
     Active Substance: EPOPROSTENOL
  4. SILDENAFIL [Concomitant]
     Active Substance: SILDENAFIL
  5. SPIRONOLACTONE [Concomitant]
     Active Substance: SPIRONOLACTONE
  6. MOLNUPIRAVIR [Concomitant]
     Active Substance: MOLNUPIRAVIR

REACTIONS (20)
  - Cardiac output decreased [Unknown]
  - Catheterisation cardiac [Recovered/Resolved]
  - Transplant evaluation [Unknown]
  - Dyspnoea [Unknown]
  - Swelling face [Unknown]
  - Cardiac output decreased [Unknown]
  - Sinus disorder [Not Recovered/Not Resolved]
  - Pulmonary arterial pressure increased [Unknown]
  - Post-traumatic stress disorder [Not Recovered/Not Resolved]
  - SARS-CoV-2 test positive [Not Recovered/Not Resolved]
  - Headache [Not Recovered/Not Resolved]
  - Abdominal discomfort [Not Recovered/Not Resolved]
  - Diarrhoea [Not Recovered/Not Resolved]
  - Sensitive skin [Not Recovered/Not Resolved]
  - Pruritus [Not Recovered/Not Resolved]
  - Clostridium test positive [Unknown]
  - Device leakage [Unknown]
  - Skin irritation [Unknown]
  - Skin erosion [Unknown]
  - Gastrointestinal disorder [Not Recovered/Not Resolved]
